FAERS Safety Report 10138236 (Version 2)
Quarter: 2014Q2

REPORT INFORMATION
  Report Type: Spontaneous
  Country: US (occurrence: US)
  Receive Date: 20140429
  Receipt Date: 20140516
  Transmission Date: 20141212
  Serious: Yes (Hospitalization)
  Sender: FDA-Public Use
  Company Number: US-BAYER-2014-060383

PATIENT
  Age: 43 Year
  Sex: Female
  Weight: 61.22 kg

DRUGS (3)
  1. YAZ [Suspect]
     Route: 048
  2. YASMIN [Suspect]
  3. DARVOCET [Concomitant]

REACTIONS (1)
  - Pulmonary artery thrombosis [None]
